FAERS Safety Report 17489314 (Version 1)
Quarter: 2020Q1

REPORT INFORMATION
  Report Type: Spontaneous
  Country: US (occurrence: US)
  Receive Date: 20200303
  Receipt Date: 20200303
  Transmission Date: 20200409
  Serious: Yes (Hospitalization)
  Sender: FDA-Public Use
  Company Number: None

PATIENT
  Age: 58 Year
  Sex: Male

DRUGS (9)
  1. ENOXAPARIN [Concomitant]
     Active Substance: ENOXAPARIN
  2. NOVOLOG [Concomitant]
     Active Substance: INSULIN ASPART
  3. NYSTATIN. [Concomitant]
     Active Substance: NYSTATIN
  4. LANTUS [Concomitant]
     Active Substance: INSULIN GLARGINE
  5. DEXAMETHASON [Concomitant]
     Active Substance: DEXAMETHASONE
  6. TEMOZOLOMIDE. [Suspect]
     Active Substance: TEMOZOLOMIDE
     Indication: BRAIN NEOPLASM MALIGNANT
  7. QUITIAPINE [Concomitant]
  8. NYSTOP [Concomitant]
     Active Substance: NYSTATIN
  9. VIMPAT [Concomitant]
     Active Substance: LACOSAMIDE

REACTIONS (3)
  - Swelling [None]
  - Erythema [None]
  - Brain neoplasm [None]

NARRATIVE: CASE EVENT DATE: 20200205
